FAERS Safety Report 8180216-1 (Version None)
Quarter: 2012Q1

REPORT INFORMATION
  Report Type: 
  Country: None (occurrence: None)
  Receive Date: 20120302
  Receipt Date: 20110518
  Transmission Date: 20120608
  Serious: Yes (Death)
  Sender: FDA-Public Use
  Company Number: AU-FRI-1000021129

PATIENT
  Age: 28 Year
  Sex: Male

DRUGS (8)
  1. MDMA [Suspect]
  2. DESOXYN [Suspect]
  3. 7-AMINOFLUNITRAZEPAM [Suspect]
  4. MORPHINE [Suspect]
  5. CITALOPRAM HYDROBROMIDE [Suspect]
  6. CODEINE SULFATE [Suspect]
  7. THC [Suspect]
  8. AMPHETAMINES [Suspect]

REACTIONS (2)
  - TOXICITY TO VARIOUS AGENTS [None]
  - DRUG INTERACTION [None]
